FAERS Safety Report 5512521-9 (Version None)
Quarter: 2007Q4

REPORT INFORMATION
  Report Type: 
  Country: None (occurrence: None)
  Receive Date: 20071112
  Receipt Date: 20070607
  Transmission Date: 20080405
  Serious: No
  Sender: FDA-Public Use
  Company Number: A0654626A

PATIENT
  Age: 62 Year
  Sex: Male

DRUGS (5)
  1. AVANDAMET [Suspect]
     Route: 048
     Dates: start: 20060101, end: 20070517
  2. GLIMEPIRIDE [Concomitant]
  3. VYTORIN [Concomitant]
  4. ASPIRIN [Concomitant]
  5. ACTAL PLUS [Concomitant]

REACTIONS (1)
  - CHEST PAIN [None]
